FAERS Safety Report 21533356 (Version 1)
Quarter: 2022Q4

REPORT INFORMATION
  Report Type: Spontaneous
  Country: US (occurrence: US)
  Receive Date: 20221101
  Receipt Date: 20221101
  Transmission Date: 20230113
  Serious: Yes (Other)
  Sender: FDA-Public Use
  Company Number: US-SA-SAC20221028000618

PATIENT
  Age: 33 Year
  Sex: Male

DRUGS (3)
  1. ZANTAC [Suspect]
     Active Substance: RANITIDINE HYDROCHLORIDE
     Indication: Dyspepsia
     Dosage: 25 MG, PRN
     Dates: start: 200507
  2. ZANTAC [Suspect]
     Active Substance: RANITIDINE HYDROCHLORIDE
     Indication: Abdominal discomfort
     Dosage: 75 MG, PRN
     Dates: end: 201707
  3. ZANTAC [Suspect]
     Active Substance: RANITIDINE HYDROCHLORIDE
     Indication: Gastric ulcer

REACTIONS (6)
  - Colorectal cancer stage II [Recovering/Resolving]
  - Gastrointestinal carcinoma [Recovering/Resolving]
  - Appendix cancer [Recovering/Resolving]
  - Carcinoid tumour in the large intestine [Unknown]
  - Small intestine carcinoma stage II [Recovering/Resolving]
  - Colon cancer stage II [Recovering/Resolving]

NARRATIVE: CASE EVENT DATE: 20170901
